FAERS Safety Report 5909389-5 (Version None)
Quarter: 2008Q4

REPORT INFORMATION
  Report Type: 
  Country: None (occurrence: None)
  Receive Date: 20081006
  Receipt Date: 20080911
  Transmission Date: 20090506
  Serious: No
  Sender: FDA-Public Use
  Company Number: US-B.I. PHARMACEUTICALS,INC./RIDGEFIELD-2006-BP-10719BP

PATIENT
  Sex: Male

DRUGS (29)
  1. MIRAPEX [Suspect]
     Indication: PARKINSON'S DISEASE
     Route: 048
     Dates: start: 20010101, end: 20060711
  2. ASPIRIN [Concomitant]
     Indication: MITRAL VALVE PROLAPSE
     Dosage: 81MG
  3. REQUIP [Concomitant]
     Indication: PARKINSON'S DISEASE
     Dates: start: 20030201
  4. PROZAC [Concomitant]
     Indication: DEPRESSION
     Dosage: 20MG
     Dates: start: 20031114, end: 20031118
  5. NEXIUM [Concomitant]
     Indication: GASTROOESOPHAGEAL REFLUX DISEASE
     Dosage: 40MG
     Dates: start: 20020217
  6. NEXIUM [Concomitant]
  7. LEXAPRO [Concomitant]
     Indication: DEPRESSION
     Dosage: 10MG
     Dates: start: 20040729, end: 20060811
  8. SINEMET [Concomitant]
     Indication: PARKINSON'S DISEASE
     Dates: start: 20011008
  9. SINEMET CR [Concomitant]
     Indication: PARKINSON'S DISEASE
  10. STALEVO 100 [Concomitant]
     Indication: PARKINSON'S DISEASE
     Dates: start: 20060620
  11. STALEVO 100 [Concomitant]
     Dates: start: 20060717
  12. AZILECT [Concomitant]
     Indication: PARKINSON'S DISEASE
     Dates: start: 20060717
  13. VIAGRA [Concomitant]
     Dosage: 50MG
     Dates: start: 20021212
  14. LEVITRA [Concomitant]
     Dosage: 20MG
  15. SULFAMETHIZOLE TAB [Concomitant]
     Dates: start: 20021202
  16. NAPROXEN [Concomitant]
     Dates: start: 20030109
  17. AMMONIUM LACTATE 12% [Concomitant]
     Dates: start: 20050624
  18. ZANTAC [Concomitant]
     Dosage: 150MG
     Dates: start: 20011229
  19. HYDROCORTISONE 2.5% CREAM [Concomitant]
     Indication: RASH
     Dates: start: 20050624
  20. CLINDAMYCIN HCL [Concomitant]
     Dates: start: 20020324
  21. FLULCONOLONE 0.01% [Concomitant]
     Dates: start: 20050624
  22. LAC-HYDRIS 12% [Concomitant]
     Dates: start: 20011110
  23. IBUPROFEN TABLETS [Concomitant]
     Dates: start: 20030418
  24. ZITHROMAX [Concomitant]
  25. NASONEX [Concomitant]
     Dates: start: 20001223
  26. BACTROBAN 2% [Concomitant]
     Dates: start: 20010725
  27. CIPRO [Concomitant]
     Dates: start: 20010725
  28. CEFRADOXIL [Concomitant]
     Dates: start: 19991108
  29. ZOCOR [Concomitant]
     Dates: start: 20010121

REACTIONS (9)
  - ANXIETY [None]
  - DEPRESSION [None]
  - EMOTIONAL DISTRESS [None]
  - FEAR [None]
  - LIBIDO INCREASED [None]
  - OBSESSIVE-COMPULSIVE DISORDER [None]
  - PAIN [None]
  - PATHOLOGICAL GAMBLING [None]
  - STRESS [None]
